FAERS Safety Report 23822327 (Version 2)
Quarter: 2024Q2

REPORT INFORMATION
  Report Type: Spontaneous
  Country: US (occurrence: US)
  Receive Date: 20240506
  Receipt Date: 20240517
  Transmission Date: 20240716
  Serious: Yes (Hospitalization)
  Sender: FDA-Public Use
  Company Number: US-MLMSERVICE-20240424-PI037605-00226-1

PATIENT
  Age: 70 Year
  Sex: Male

DRUGS (4)
  1. REMERON [Suspect]
     Active Substance: MIRTAZAPINE
     Indication: Increased appetite
     Dosage: UNK
     Route: 048
  2. REMERON [Suspect]
     Active Substance: MIRTAZAPINE
     Indication: Depressive symptom
  3. CYPROHEPTADINE [Concomitant]
     Active Substance: CYPROHEPTADINE
     Dosage: UNK
  4. LACTIC ACID [Concomitant]
     Active Substance: LACTIC ACID
     Dosage: UNK

REACTIONS (4)
  - Confusional state [Unknown]
  - Hyperhidrosis [Unknown]
  - Myoclonus [Unknown]
  - Hyperreflexia [Unknown]
